FAERS Safety Report 7470254-6 (Version None)
Quarter: 2011Q2

REPORT INFORMATION
  Report Type: 
  Country: None (occurrence: None)
  Receive Date: 20110510
  Receipt Date: 20110506
  Transmission Date: 20111010
  Serious: Yes (Life-Threatening, Hospitalization)
  Sender: FDA-Public Use
  Company Number: BE-ROCHE-740139

PATIENT
  Sex: Male
  Weight: 98.3 kg

DRUGS (9)
  1. CAPECITABINE [Suspect]
     Indication: RECTAL CANCER
     Dosage: LAST DOSE PRIOR TO SAE: 12 MAY 2011
     Route: 048
     Dates: start: 20100830
  2. GTN SPRAY [Concomitant]
     Indication: ANGINA PECTORIS
     Dosage: FREQUENCY: PRN
     Route: 055
     Dates: start: 20080101
  3. ASPIRIN [Concomitant]
     Route: 048
     Dates: start: 20080101
  4. ATENOLOL [Concomitant]
     Route: 048
     Dates: start: 20080101
  5. CLOPIDOGREL [Concomitant]
     Route: 048
     Dates: start: 20080101, end: 20101108
  6. METFORMIN HCL [Concomitant]
     Route: 048
     Dates: start: 20080101
  7. OXALIPLATIN [Suspect]
     Indication: RECTAL CANCER
     Dosage: LAST DOSE PRIOR TO SAE: 18 APR 2011.
     Route: 042
     Dates: start: 20100830
  8. ENOXAPARIN SODIUM [Concomitant]
  9. ATORVASTATIN [Concomitant]
     Route: 048
     Dates: start: 20080101

REACTIONS (4)
  - DYSPNOEA [None]
  - ANAEMIA [None]
  - PULMONARY EMBOLISM [None]
  - CHEST PAIN [None]
